FAERS Safety Report 18996925 (Version 11)
Quarter: 2025Q1

REPORT INFORMATION
  Report Type: Report from Study
  Country: CA (occurrence: CA)
  Receive Date: 20210311
  Receipt Date: 20250106
  Transmission Date: 20250409
  Serious: No
  Sender: TAKEDA
  Company Number: CA-TAKEDA-2020TUS018309

PATIENT
  Sex: Female

DRUGS (24)
  1. VEDOLIZUMAB [Suspect]
     Active Substance: VEDOLIZUMAB
     Indication: Colitis ulcerative
  2. VEDOLIZUMAB [Suspect]
     Active Substance: VEDOLIZUMAB
  3. VEDOLIZUMAB [Suspect]
     Active Substance: VEDOLIZUMAB
  4. VEDOLIZUMAB [Suspect]
     Active Substance: VEDOLIZUMAB
  5. VEDOLIZUMAB [Suspect]
     Active Substance: VEDOLIZUMAB
  6. VEDOLIZUMAB [Suspect]
     Active Substance: VEDOLIZUMAB
  7. VEDOLIZUMAB [Suspect]
     Active Substance: VEDOLIZUMAB
  8. VEDOLIZUMAB [Suspect]
     Active Substance: VEDOLIZUMAB
  9. VEDOLIZUMAB [Suspect]
     Active Substance: VEDOLIZUMAB
  10. VEDOLIZUMAB [Suspect]
     Active Substance: VEDOLIZUMAB
  11. VEDOLIZUMAB [Suspect]
     Active Substance: VEDOLIZUMAB
  12. TRIMEBUTINE [Concomitant]
     Active Substance: TRIMEBUTINE
     Dosage: 200 MILLIGRAM, BID
  13. LIBRAX [Concomitant]
     Active Substance: CHLORDIAZEPOXIDE HYDROCHLORIDE\CLIDINIUM BROMIDE
     Dosage: 2.5 MILLIGRAM, BID
  14. PANTOPRAZOLE [Concomitant]
     Active Substance: PANTOPRAZOLE
     Dosage: 40 MILLIGRAM, BID
     Dates: start: 20240703
  15. MELOXICAM [Concomitant]
     Active Substance: MELOXICAM
     Dosage: 725 MILLIGRAM, BID
  16. ATIVAN [Concomitant]
     Active Substance: LORAZEPAM
  17. BETAHISTINE [Concomitant]
     Active Substance: BETAHISTINE
  18. SUMATRIPTAN [Concomitant]
     Active Substance: SUMATRIPTAN
  19. OZEMPIC [Concomitant]
     Active Substance: SEMAGLUTIDE
  20. RESTORIL [Concomitant]
     Active Substance: TEMAZEPAM
  21. NASONEX [Concomitant]
     Active Substance: MOMETASONE FUROATE
     Dosage: 500 MICROGRAM, BID
  22. AMOXICILLIN\CLAVULANIC ACID [Concomitant]
     Active Substance: AMOXICILLIN\CLAVULANIC ACID
  23. METRONIDAZOLE [Concomitant]
     Active Substance: METRONIDAZOLE
  24. CIPROFLOXACIN [Concomitant]
     Active Substance: CIPROFLOXACIN
     Dosage: 500 MILLIGRAM, BID
     Dates: end: 20240728

REACTIONS (3)
  - Body temperature decreased [Unknown]
  - Heart rate increased [Unknown]
  - Blood pressure increased [Unknown]
